FAERS Safety Report 6679071-8 (Version None)
Quarter: 2010Q2

REPORT INFORMATION
  Report Type: 
  Country: None (occurrence: None)
  Receive Date: 20100409
  Receipt Date: 20100325
  Transmission Date: 20101027
  Serious: Yes (Hospitalization)
  Sender: FDA-Public Use
  Company Number: 2010-00381

PATIENT
  Age: 86 Year
  Sex: Male

DRUGS (5)
  1. LISINOPRIL [Suspect]
     Indication: HYPERTENSION
     Dosage: 10 MG (1 IN 1 D), ORAL
     Route: 048
     Dates: start: 20090930, end: 20100315
  2. AMLODIPINE [Concomitant]
  3. ASPIRIN [Concomitant]
  4. RANITIDINE [Concomitant]
  5. SIMVASTATIN [Concomitant]

REACTIONS (4)
  - BLOOD CREATININE INCREASED [None]
  - BLOOD POTASSIUM INCREASED [None]
  - BLOOD UREA INCREASED [None]
  - GLOMERULAR FILTRATION RATE DECREASED [None]
